FAERS Safety Report 7932874-1 (Version None)
Quarter: 2011Q4

REPORT INFORMATION
  Report Type: 
  Country: None (occurrence: None)
  Receive Date: 20111122
  Receipt Date: 20111114
  Transmission Date: 20120403
  Serious: Yes (Hospitalization)
  Sender: FDA-Public Use
  Company Number: US-ASTELLAS-2011US006482

PATIENT
  Sex: Female

DRUGS (6)
  1. ERLOTINIB HYDROCHLORIDE [Suspect]
     Indication: TRACHEAL CANCER
     Dosage: 150 MG, UID/QD
     Route: 048
     Dates: start: 20110801, end: 20110901
  2. MIRALAX [Concomitant]
     Indication: CONSTIPATION
     Dosage: UNK
     Route: 065
  3. OXYCONTIN [Concomitant]
     Indication: PRODUCT USED FOR UNKNOWN INDICATION
     Dosage: UNK
     Route: 065
  4. SENNA [Concomitant]
     Indication: CONSTIPATION
     Dosage: UNK
     Route: 065
  5. REGLAN [Concomitant]
     Indication: NAUSEA
     Dosage: UNK
     Route: 065
  6. OMEPRAZOLE [Concomitant]
     Indication: PRODUCT USED FOR UNKNOWN INDICATION
     Dosage: UNK
     Route: 065

REACTIONS (4)
  - RASH [None]
  - OFF LABEL USE [None]
  - GASTROINTESTINAL EROSION [None]
  - HAEMORRHAGE [None]
